FAERS Safety Report 6913851-6 (Version None)
Quarter: 2010Q3

REPORT INFORMATION
  Report Type: 
  Country: None (occurrence: None)
  Receive Date: 20100809
  Receipt Date: 20100727
  Transmission Date: 20110219
  Serious: Yes (Death, Other)
  Sender: FDA-Public Use
  Company Number: VE-ROCHE-718557

PATIENT

DRUGS (1)
  1. BEVACIZUMAB [Suspect]
     Route: 031

REACTIONS (8)
  - CATARACT [None]
  - CEREBROVASCULAR ACCIDENT [None]
  - DEATH [None]
  - ENDOPHTHALMITIS [None]
  - HYPERTENSION [None]
  - INTRAOCULAR PRESSURE INCREASED [None]
  - RETINAL PIGMENT EPITHELIAL TEAR [None]
  - UVEITIS [None]
